FAERS Safety Report 6202513-9 (Version None)
Quarter: 2009Q2

REPORT INFORMATION
  Report Type: 
  Country: None (occurrence: None)
  Receive Date: 20090521
  Receipt Date: 20090521
  Transmission Date: 20091009
  Serious: No
  Sender: FDA-Public Use
  Company Number: None

PATIENT
  Age: 29 Year
  Sex: Female
  Weight: 65.318 kg

DRUGS (2)
  1. AMPHETAMINE AND DEXTROAMPHETAMINE SALTS [Suspect]
     Indication: ATTENTION DEFICIT/HYPERACTIVITY DISORDER
     Dosage: 1 EACH AM - 1 AT NOON
     Dates: start: 20090420, end: 20090520
  2. ADDERALL XR 20 [Suspect]

REACTIONS (3)
  - DRUG HYPERSENSITIVITY [None]
  - PRURITUS GENERALISED [None]
  - RASH GENERALISED [None]
